FAERS Safety Report 8798972 (Version 2)
Quarter: 2013Q1

REPORT INFORMATION
  Report Type: Spontaneous
  Country: US (occurrence: None)
  Receive Date: 20120914
  Receipt Date: 20121019
  Transmission Date: 20140127
  Serious: Yes (Other)
  Sender: FDA-Public Use
  Company Number: USA/USA/12/0025809

PATIENT
  Age: 69 Year
  Sex: Male
  Weight: 104.33 kg

DRUGS (8)
  1. AUGMENTIN [Suspect]
     Indication: ACUTE SINUSITIS
     Route: 048
     Dates: start: 20120813, end: 20120823
  2. COREG (CARVEDILOL) [Concomitant]
  3. XARELTO (RIVAROXABAN) [Concomitant]
  4. DIAZEPAM (DIAZEPAM) [Concomitant]
  5. B COMPLEX (NICOTINAM, W/PYRIDOXI. HCL/RIBOFL./THIAM. HCL) [Concomitant]
  6. VITAMIN C [Concomitant]
  7. MAGNESIUM (MAGNESIUM) [Concomitant]
  8. FISH OIL (FISH OIL) [Concomitant]

REACTIONS (2)
  - Erythema multiforme [None]
  - Atrial fibrillation [None]
